FAERS Safety Report 10097996 (Version 1)
Quarter: 2014Q2

REPORT INFORMATION
  Report Type: Spontaneous
  Country: PK (occurrence: PK)
  Receive Date: 20140423
  Receipt Date: 20140423
  Transmission Date: 20141212
  Serious: Yes (Hospitalization)
  Sender: FDA-Public Use
  Company Number: PK-ACCORD-023225

PATIENT
  Age: 29 Year
  Sex: Male

DRUGS (1)
  1. FLUOROURACIL [Suspect]
     Indication: OESOPHAGEAL CARCINOMA

REACTIONS (5)
  - Acute myocardial infarction [Recovered/Resolved]
  - Renal failure acute [Recovered/Resolved]
  - Left ventricular dysfunction [Recovered/Resolved]
  - Arteriospasm coronary [Recovered/Resolved]
  - Leukoencephalopathy [Recovered/Resolved]
